FAERS Safety Report 16831654 (Version 1)
Quarter: 2019Q3

REPORT INFORMATION
  Report Type: Spontaneous
  Country: JP (occurrence: JP)
  Receive Date: 20190920
  Receipt Date: 20190920
  Transmission Date: 20191005
  Serious: Yes (Hospitalization)
  Sender: FDA-Public Use
  Company Number: JP-TEVA-2019-JP-006007J

PATIENT
  Age: 43 Year
  Sex: Female

DRUGS (1)
  1. AMOLIN CAPSULES 250 [Suspect]
     Active Substance: AMOXICILLIN
     Indication: PRODUCT USED FOR UNKNOWN INDICATION
     Dosage: DOSAGE IS UNKNOWN
     Route: 065
     Dates: start: 201807, end: 201807

REACTIONS (1)
  - Drug eruption [Unknown]
